FAERS Safety Report 26048462 (Version 1)
Quarter: 2025Q4

REPORT INFORMATION
  Report Type: Spontaneous
  Country: US (occurrence: US)
  Receive Date: 20251114
  Receipt Date: 20251114
  Transmission Date: 20260117
  Serious: No
  Sender: BAUSCH AND LOMB
  Company Number: US-BAUSCH-BH-2025-019953

PATIENT
  Sex: Female

DRUGS (1)
  1. NASALCROM [Suspect]
     Active Substance: CROMOLYN SODIUM
     Indication: Seasonal allergy
     Dosage: ONE SPRAY
     Route: 045

REACTIONS (1)
  - Pharyngeal swelling [Recovered/Resolved]
